FAERS Safety Report 7506514-X (Version None)
Quarter: 2011Q2

REPORT INFORMATION
  Report Type: 
  Country: None (occurrence: None)
  Receive Date: 20110526
  Receipt Date: 20110512
  Transmission Date: 20111010
  Serious: Yes (Hospitalization)
  Sender: FDA-Public Use
  Company Number: US-JNJFOC-20110505390

PATIENT
  Sex: Male
  Weight: 52.7 kg

DRUGS (10)
  1. ALLEGRA [Concomitant]
  2. INFLIXIMAB, RECOMBINANT [Suspect]
     Indication: INFLAMMATORY BOWEL DISEASE
     Route: 042
     Dates: start: 20100722, end: 20100916
  3. HUMIRA [Concomitant]
     Indication: INFLAMMATORY BOWEL DISEASE
     Dates: start: 20100930
  4. PREDNISONE [Concomitant]
  5. LACTOBACILLUS [Concomitant]
  6. FERROUS SULFATE TAB [Concomitant]
  7. METHOTREXATE [Concomitant]
  8. FOLIC ACID [Concomitant]
  9. OMEPRAZOLE [Concomitant]
  10. SINGULAIR [Concomitant]

REACTIONS (1)
  - VIRAL INFECTION [None]
